FAERS Safety Report 18192904 (Version 1)
Quarter: 2020Q3

REPORT INFORMATION
  Report Type: Spontaneous
  Country: FR (occurrence: FR)
  Receive Date: 20200825
  Receipt Date: 20200825
  Transmission Date: 20201103
  Serious: Yes (Hospitalization, Other)
  Sender: FDA-Public Use
  Company Number: FR-TAKEDA-2020TUS035799

PATIENT
  Age: 56 Year
  Sex: Male
  Weight: 93 kg

DRUGS (1)
  1. VELCADE [Suspect]
     Active Substance: BORTEZOMIB
     Indication: PLASMA CELL MYELOMA
     Dosage: 6.5 MILLIGRAM/SQ. METER, MONTHLY
     Route: 042
     Dates: start: 20200612, end: 20200721

REACTIONS (3)
  - Cardiac disorder [Recovering/Resolving]
  - Renal failure [Recovering/Resolving]
  - Cardiorenal syndrome [Recovering/Resolving]

NARRATIVE: CASE EVENT DATE: 202007
